FAERS Safety Report 13354365 (Version 1)
Quarter: 2017Q1

REPORT INFORMATION
  Report Type: Spontaneous
  Country: BR (occurrence: BR)
  Receive Date: 20170321
  Receipt Date: 20170321
  Transmission Date: 20170429
  Serious: Yes (Other)
  Sender: FDA-Public Use
  Company Number: BR-009507513-1608BRA008469

PATIENT
  Age: 19 Year
  Sex: Female
  Weight: 51 kg

DRUGS (2)
  1. AEROLIN [Concomitant]
     Active Substance: ALBUTEROL
     Indication: ASTHMA
     Dosage: FORMULATION: SPRAY
     Route: 055
     Dates: start: 1999
  2. MERCILON  CONTI [Suspect]
     Active Substance: DESOGESTREL\ETHINYL ESTRADIOL
     Indication: CONTRACEPTION
     Dosage: UNK
     Route: 048
     Dates: start: 2013, end: 20160524

REACTIONS (5)
  - Caesarean section [Recovered/Resolved]
  - Menorrhagia [Recovered/Resolved]
  - Therapeutic response unexpected [Unknown]
  - Pregnancy on oral contraceptive [Recovered/Resolved]
  - Unintended pregnancy [Recovered/Resolved]

NARRATIVE: CASE EVENT DATE: 2013
